FAERS Safety Report 5744865-X (Version None)
Quarter: 2008Q2

REPORT INFORMATION
  Report Type: 
  Country: None (occurrence: None)
  Receive Date: 20080516
  Receipt Date: 20080425
  Transmission Date: 20081010
  Serious: Yes (Other)
  Sender: FDA-Public Use
  Company Number: 2008MP000089

PATIENT
  Age: 15 Year
  Sex: Female

DRUGS (1)
  1. GLIADEL [Suspect]
     Indication: EPENDYMOMA MALIGNANT
     Dosage: 1X; ICER

REACTIONS (2)
  - NEOPLASM RECURRENCE [None]
  - NERVOUS SYSTEM DISORDER [None]
